FAERS Safety Report 15579836 (Version 1)
Quarter: 2018Q4

REPORT INFORMATION
  Report Type: Spontaneous
  Country: US (occurrence: US)
  Receive Date: 20181102
  Receipt Date: 20181102
  Transmission Date: 20190205
  Serious: Yes (Other)
  Sender: FDA-Public Use
  Company Number: US-LANNETT COMPANY, INC.-US-2018LAN001263

PATIENT
  Age: 23 Year
  Sex: Male

DRUGS (3)
  1. DEXTROAMPHETAMINE                  /00016601/ [Concomitant]
     Active Substance: DEXTROAMPHETAMINE
     Indication: PSYCHOMOTOR HYPERACTIVITY
     Dosage: UNK
  2. AMPHETAMINE [Concomitant]
     Active Substance: AMPHETAMINE
     Indication: PSYCHOMOTOR HYPERACTIVITY
  3. BUPRENORPHINE AND NALOXONE [Suspect]
     Active Substance: BUPRENORPHINE\NALOXONE
     Indication: PRODUCT USED FOR UNKNOWN INDICATION
     Dosage: UNK
     Route: 013

REACTIONS (3)
  - Embolism [Unknown]
  - Peripheral ischaemia [Recovering/Resolving]
  - Intentional product use issue [Recovering/Resolving]
